FAERS Safety Report 10190870 (Version 4)
Quarter: 2014Q3

REPORT INFORMATION
  Report Type: Report from Study
  Country: CZ (occurrence: CZ)
  Receive Date: 20140523
  Receipt Date: 20140707
  Transmission Date: 20150326
  Serious: Yes (Hospitalization)
  Sender: FDA-Public Use
  Company Number: CZ-ROCHE-1088707

PATIENT
  Age: 77 Year
  Sex: Male
  Weight: 81.5 kg

DRUGS (17)
  1. CYCLOPHOSPHAMIDE. [Suspect]
     Active Substance: CYCLOPHOSPHAMIDE
     Indication: NON-HODGKIN^S LYMPHOMA UNSPECIFIED HISTOLOGY INDOLENT
     Dosage: DATE OF MOST RECENT DOSE (1440 MG) PRIOR TO AE ONSET : 31/MAY/2012.
     Route: 042
     Dates: start: 20120215
  2. PREDNISONE. [Suspect]
     Active Substance: PREDNISONE
     Indication: NON-HODGKIN^S LYMPHOMA UNSPECIFIED HISTOLOGY INDOLENT
     Dosage: DATE OF MOST RECENT DOSE (100 MG) PRIOR TO AE ONSET : 31/MAY/2012
     Route: 065
     Dates: start: 20120215
  3. RAMIPRIL. [Concomitant]
     Active Substance: RAMIPRIL
     Indication: MYOCARDIAL ISCHAEMIA
  4. VINCRISTINE [Suspect]
     Active Substance: VINCRISTINE
     Indication: NON-HODGKIN^S LYMPHOMA UNSPECIFIED HISTOLOGY INDOLENT
     Dosage: DATE OF MOST RECENT DOSE (2 MG) PRIOR TO AE ONSET : 31/MAY/2012
     Route: 040
  5. BISOPROLOLI FUMARAS [Concomitant]
     Indication: MYOCARDIAL ISCHAEMIA
     Route: 065
     Dates: start: 2005
  6. PEGFILGRASTIMUM [Concomitant]
     Indication: PROPHYLAXIS
     Route: 065
     Dates: start: 20120222, end: 20130606
  7. DOXORUBICIN [Suspect]
     Active Substance: DOXORUBICIN
     Indication: NON-HODGKIN^S LYMPHOMA UNSPECIFIED HISTOLOGY INDOLENT
     Dosage: DATE OF MOST RECENT DOSE (96 MG) PRIOR TO AE ONSET : 31/MAY/2012
     Route: 042
     Dates: start: 20120215
  8. BISULEPIN HYDROCHLORIDE [Concomitant]
     Active Substance: BISULEPIN HYDROCHLORIDE
     Route: 065
     Dates: start: 20120215
  9. OBINUTUZUMAB [Suspect]
     Active Substance: OBINUTUZUMAB
     Indication: NON-HODGKIN^S LYMPHOMA UNSPECIFIED HISTOLOGY INDOLENT
     Dosage: DOSE OF MOST RECENT DOSE(DOSE CONCENTRATION : 4 MG/ML, VOLUME : 250 ML) PRIOR TO SAE: 21/JUN/2012.
     Route: 042
     Dates: start: 20120215
  10. PARACETAMOL [Concomitant]
     Active Substance: ACETAMINOPHEN
     Route: 065
     Dates: start: 20120215
  11. HYDROCORTISONUM [Concomitant]
     Indication: DYSPNOEA
     Route: 065
     Dates: start: 20120215
  12. SULFAMETHOXAZOLUM [Concomitant]
     Route: 065
     Dates: start: 20120419
  13. ACYCLOVIR. [Concomitant]
     Active Substance: ACYCLOVIR
     Route: 065
     Dates: start: 20120419, end: 20120823
  14. ENOXAPARIN NATRIUM [Concomitant]
     Indication: MYOCARDIAL ISCHAEMIA
     Route: 065
     Dates: start: 20120130
  15. OMEPRAZOLUM [Concomitant]
     Route: 065
     Dates: start: 20120215
  16. LANSOPRAZOLUM [Concomitant]
     Indication: GASTRITIS
  17. HYDROCORTISONUM [Concomitant]
     Indication: CHILLS

REACTIONS (1)
  - Oesophageal candidiasis [Recovered/Resolved]

NARRATIVE: CASE EVENT DATE: 20120702
